FAERS Safety Report 9651463 (Version 2)
Quarter: 2013Q4

REPORT INFORMATION
  Report Type: Spontaneous
  Country: DE (occurrence: DE)
  Receive Date: 20131029
  Receipt Date: 20131029
  Transmission Date: 20140711
  Serious: Yes (Hospitalization, Other)
  Sender: FDA-Public Use
  Company Number: DE-JNJFOC-20130702990

PATIENT
  Sex: Female
  Weight: 90 kg

DRUGS (3)
  1. XARELTO [Suspect]
     Indication: ATRIAL FIBRILLATION
     Route: 048
  2. XARELTO [Suspect]
     Indication: CEREBROVASCULAR ACCIDENT PROPHYLAXIS
     Route: 048
  3. PAROXETINE [Concomitant]
     Route: 065

REACTIONS (3)
  - Urogenital haemorrhage [Recovered/Resolved]
  - Cerebrovascular accident [Unknown]
  - Renal pain [Unknown]
